FAERS Safety Report 8971597 (Version 1)
Quarter: 2012Q4

REPORT INFORMATION
  Report Type: 
  Country: CY (occurrence: CY)
  Receive Date: 20121217
  Receipt Date: 20121217
  Transmission Date: 20130627
  Serious: Yes (Other)
  Sender: FDA-Public Use
  Company Number: CY-UCBSA-072927

PATIENT
  Age: 35 Year
  Sex: Female
  Weight: 55 kg

DRUGS (4)
  1. KEPPRA [Suspect]
     Route: 048
  2. TEGRETOL [Concomitant]
     Indication: CONVULSION
     Dosage: 800 MG
  3. FOLICIL [Concomitant]
     Dosage: 5 MG
  4. IRON [Concomitant]

REACTIONS (4)
  - Premature delivery [Recovered/Resolved]
  - Convulsion [Unknown]
  - Twin pregnancy [Recovered/Resolved]
  - Pregnancy [Recovered/Resolved]
